FAERS Safety Report 4302570-0 (Version None)
Quarter: 2004Q1

REPORT INFORMATION
  Report Type: 
  Country: None (occurrence: None)
  Receive Date: 20040220
  Receipt Date: 20040211
  Transmission Date: 20041129
  Serious: Yes (Hospitalization)
  Sender: FDA-Public Use
  Company Number: GBWYE583316FEB04

PATIENT
  Sex: Female

DRUGS (2)
  1. ADVIL [Suspect]
     Indication: TENDONITIS
     Dosage: 400 MG 4X PER 1 DAY, ORAL
     Route: 048
  2. LITHIUM (LITHIUM, 0) [Suspect]
     Indication: BIPOLAR DISORDER
     Dosage: ORAL
     Route: 048

REACTIONS (7)
  - ATAXIA [None]
  - CONFUSIONAL STATE [None]
  - DRUG INTERACTION [None]
  - MULTIPLE MYELOMA [None]
  - PATHOLOGICAL FRACTURE [None]
  - RENAL FAILURE [None]
  - STUPOR [None]
